FAERS Safety Report 6916408-6 (Version None)
Quarter: 2010Q3

REPORT INFORMATION
  Report Type: 
  Country: None (occurrence: None)
  Receive Date: 20100810
  Receipt Date: 20100729
  Transmission Date: 20110219
  Serious: Yes (Hospitalization)
  Sender: FDA-Public Use
  Company Number: MX-ELI_LILLY_AND_COMPANY-MX201008001456

PATIENT
  Age: 60 Year
  Sex: Female
  Weight: 76 kg

DRUGS (2)
  1. FORTEO [Suspect]
     Indication: PROPHYLAXIS
     Dosage: 20 UG, DAILY (1/D)
     Route: 058
  2. LIVIAL [Concomitant]
     Dosage: UNK, UNKNOWN
     Route: 065
     Dates: start: 20000101

REACTIONS (6)
  - DIZZINESS [None]
  - DRY THROAT [None]
  - FEELING HOT [None]
  - NAUSEA [None]
  - TACHYCARDIA [None]
  - THROAT TIGHTNESS [None]
